FAERS Safety Report 7402629-5 (Version None)
Quarter: 2011Q2

REPORT INFORMATION
  Report Type: 
  Country: None (occurrence: None)
  Receive Date: 20110408
  Receipt Date: 20110330
  Transmission Date: 20111010
  Serious: Yes (Hospitalization, Disabling, Other)
  Sender: FDA-Public Use
  Company Number: GB-ABBOTT-11P-167-0712331-00

PATIENT
  Age: 62 Year
  Sex: Male

DRUGS (2)
  1. HUMIRA [Suspect]
     Indication: RHEUMATOID ARTHRITIS
     Route: 058
  2. STEROIDS [Concomitant]
     Indication: PRODUCT USED FOR UNKNOWN INDICATION

REACTIONS (4)
  - GALLBLADDER NECROSIS [None]
  - ABDOMINAL PAIN [None]
  - DIARRHOEA [None]
  - GASTROINTESTINAL NECROSIS [None]
